FAERS Safety Report 7789988-9 (Version None)
Quarter: 2011Q3

REPORT INFORMATION
  Report Type: 
  Country: None (occurrence: None)
  Receive Date: 20110930
  Receipt Date: 20101013
  Transmission Date: 20111222
  Serious: No
  Sender: FDA-Public Use
  Company Number: US-ASTRAZENECA-2010SE48690

PATIENT
  Age: 59 Year
  Sex: Female

DRUGS (3)
  1. ENALAPRIL MALEATE [Concomitant]
  2. METFORMIN HCL [Concomitant]
  3. ARIMIDEX [Suspect]
     Indication: BREAST CANCER
     Route: 048

REACTIONS (6)
  - INSOMNIA [None]
  - FEELING COLD [None]
  - MYALGIA [None]
  - ASTHENIA [None]
  - DYSURIA [None]
  - HOT FLUSH [None]
